FAERS Safety Report 16359780 (Version 2)
Quarter: 2020Q1

REPORT INFORMATION
  Report Type: Spontaneous
  Country: US (occurrence: US)
  Receive Date: 20190528
  Receipt Date: 20200114
  Transmission Date: 20200409
  Serious: Yes (Other)
  Sender: FDA-Public Use
  Company Number: US-009507513-1905USA010400

PATIENT
  Age: 69 Year
  Sex: Female

DRUGS (3)
  1. KEYTRUDA [Suspect]
     Active Substance: PEMBROLIZUMAB
     Indication: MALIGNANT MELANOMA
     Dosage: UNK UNK, QW
  2. SD-101 [Concomitant]
     Active Substance: ALLANTOIN
  3. TOLL-LIKE RECEPTOR 9 AGONIST [Concomitant]

REACTIONS (2)
  - Respiratory failure [Recovered/Resolved]
  - Myopathy [Recovered/Resolved]
